FAERS Safety Report 8573227-5 (Version None)
Quarter: 2012Q3

REPORT INFORMATION
  Report Type: 
  Country: None (occurrence: None)
  Receive Date: 20120806
  Receipt Date: 20120731
  Transmission Date: 20120928
  Serious: Yes (Other)
  Sender: FDA-Public Use
  Company Number: US-PFIZER INC-2012155277

PATIENT
  Age: 54 Year
  Sex: Female
  Weight: 64.853 kg

DRUGS (13)
  1. DEXTROAMPHETAMINE SULFATE [Suspect]
     Indication: ATTENTION DEFICIT/HYPERACTIVITY DISORDER
     Dosage: 5 MG, UNK
  2. OXYCODONE [Concomitant]
     Indication: BACK PAIN
     Dosage: 5 MG, 3X/DAY
  3. GABAPENTIN [Suspect]
     Indication: HYPOAESTHESIA
     Dosage: 50 MG, 2X/DAY
     Dates: start: 20120101, end: 20120101
  4. LYRICA [Suspect]
     Indication: HYPOAESTHESIA
     Dosage: 50 MG, 3X/DAY
     Route: 048
     Dates: start: 20120425, end: 20120101
  5. LYRICA [Suspect]
     Indication: PAIN
     Dosage: 50 MG, 2X/DAY
     Route: 048
     Dates: start: 20120626
  6. NAPROXEN (ALEVE) [Suspect]
     Indication: PAIN
     Dosage: 220 MG, AS NEEDED
     Dates: start: 20120101
  7. ALBUTEROL SULFATE [Concomitant]
     Indication: ASTHMA
     Dosage: UNK
  8. ASPIRIN [Suspect]
     Dosage: UNK
  9. OXYCODONE [Concomitant]
     Indication: PAIN IN EXTREMITY
  10. LYRICA [Suspect]
     Indication: PAIN IN EXTREMITY
     Dosage: TWO 50MG CAPSULES IN MORNING AND ONE 50MG CAPSULE IN EVENING
     Route: 048
     Dates: start: 20120101, end: 20120101
  11. LYRICA [Suspect]
     Dosage: 100MG IN MORNING AND 50MG IN AFTERNOON, 2X/DAY
     Route: 048
     Dates: start: 20120101
  12. GABAPENTIN [Suspect]
     Indication: NEURALGIA
     Dosage: UNK
     Dates: start: 20120101, end: 20120101
  13. IBUPROFEN [Suspect]
     Dosage: UNK

REACTIONS (17)
  - DRUG INEFFECTIVE [None]
  - VISION BLURRED [None]
  - LETHARGY [None]
  - DEPRESSION [None]
  - ACTIVITIES OF DAILY LIVING IMPAIRED [None]
  - ABASIA [None]
  - HYPOAESTHESIA [None]
  - FEELING ABNORMAL [None]
  - DISTURBANCE IN ATTENTION [None]
  - EMOTIONAL DISORDER [None]
  - PAIN [None]
  - ABDOMINAL DISTENSION [None]
  - GASTRIC DISORDER [None]
  - INSOMNIA [None]
  - RESPIRATORY DISORDER [None]
  - FLUSHING [None]
  - DRUG INTOLERANCE [None]
